FAERS Safety Report 5844984-3 (Version None)
Quarter: 2008Q3

REPORT INFORMATION
  Report Type: 
  Country: None (occurrence: None)
  Receive Date: 20080813
  Receipt Date: 20080813
  Transmission Date: 20090109
  Serious: Yes (Hospitalization)
  Sender: FDA-Public Use
  Company Number: None

PATIENT
  Sex: Male

DRUGS (1)
  1. INTRON A [Suspect]
     Indication: MALIGNANT MELANOMA
     Dosage: 21 MILLION UNITS THREE TIMES A WEEK SQ
     Route: 058
     Dates: start: 20080624, end: 20080728

REACTIONS (4)
  - AMNESIA [None]
  - BIPOLAR DISORDER [None]
  - CONVULSION [None]
  - COORDINATION ABNORMAL [None]
